FAERS Safety Report 15020441 (Version 1)
Quarter: 2018Q2

REPORT INFORMATION
  Report Type: Spontaneous
  Country: US (occurrence: US)
  Receive Date: 20180531
  Receipt Date: 20180531
  Transmission Date: 20180711
  Serious: Yes (Disabling)
  Sender: FDA-Public Use
  Company Number: None

PATIENT
  Age: 69 Year
  Sex: Male
  Weight: 75.6 kg

DRUGS (2)
  1. OMEPRIZOLE [Concomitant]
  2. SEVOFLURANE. [Suspect]
     Active Substance: SEVOFLURANE
     Indication: ANAESTHESIA
     Dates: start: 20180329, end: 20180329

REACTIONS (8)
  - Pyrexia [None]
  - Chills [None]
  - Jaundice [None]
  - Malaise [None]
  - Urticaria [None]
  - Liver injury [None]
  - Liver function test increased [None]
  - Chromaturia [None]

NARRATIVE: CASE EVENT DATE: 20180329
